FAERS Safety Report 11582346 (Version 1)
Quarter: 2015Q3

REPORT INFORMATION
  Report Type: Spontaneous
  Country: US (occurrence: None)
  Receive Date: 20150930
  Receipt Date: 20150930
  Transmission Date: 20151125
  Serious: No
  Sender: FDA-Public Use
  Company Number: None

PATIENT
  Age: 66 Year
  Sex: Male

DRUGS (13)
  1. AFINITOR [Suspect]
     Active Substance: EVEROLIMUS
     Indication: NEOPLASM MALIGNANT
     Route: 048
     Dates: start: 20150917
  2. SANDOSTATIN KIT LAR [Concomitant]
  3. TRAMADOL HCL TAB [Concomitant]
  4. AMLODIPINE [Concomitant]
     Active Substance: AMLODIPINE BESYLATE
  5. ONDANSETRON [Concomitant]
     Active Substance: ONDANSETRON
  6. METFORMIN [Concomitant]
     Active Substance: METFORMIN HYDROCHLORIDE
  7. SIMVASTATIN TAB [Concomitant]
     Active Substance: SIMVASTATIN
  8. CREON [Concomitant]
     Active Substance: PANCRELIPASE AMYLASE\PANCRELIPASE LIPASE\PANCRELIPASE PROTEASE
  9. PREDNISONE. [Concomitant]
     Active Substance: PREDNISONE
  10. ALEVE [Concomitant]
     Active Substance: NAPROXEN SODIUM
  11. AMEIEN [Concomitant]
  12. LISINOPRIL. [Concomitant]
     Active Substance: LISINOPRIL
  13. ZOFRAN TAB [Concomitant]

REACTIONS (1)
  - Diarrhoea [None]
